FAERS Safety Report 5158846-0 (Version None)
Quarter: 2006Q4

REPORT INFORMATION
  Report Type: 
  Country: None (occurrence: None)
  Receive Date: 20061117
  Receipt Date: 20061108
  Transmission Date: 20070319
  Serious: Yes (Other)
  Sender: FDA-Public Use
  Company Number: 163-21880-06110454

PATIENT
  Sex: Female

DRUGS (2)
  1. REVLIMID [Suspect]
     Indication: MULTIPLE MYELOMA
     Dosage: 10 MG, 1 IN 1 D, ORAL; 15 MG, ORAL
     Route: 048
     Dates: start: 20061005, end: 20060101
  2. REVLIMID [Suspect]
     Indication: MULTIPLE MYELOMA
     Dosage: 10 MG, 1 IN 1 D, ORAL; 15 MG, ORAL
     Route: 048
     Dates: start: 20061101

REACTIONS (1)
  - TIBIA FRACTURE [None]
